FAERS Safety Report 20013912 (Version 2)
Quarter: 2021Q4

REPORT INFORMATION
  Report Type: Report from Study
  Country: US (occurrence: US)
  Receive Date: 20211029
  Receipt Date: 20211103
  Transmission Date: 20220303
  Serious: Yes (Death)
  Sender: FDA-Public Use
  Company Number: US-PFIZER INC-202101452839

PATIENT
  Age: 46 Year
  Sex: Female
  Weight: 73.469 kg

DRUGS (2)
  1. PALBOCICLIB [Suspect]
     Active Substance: PALBOCICLIB
     Indication: Rectal adenocarcinoma
     Dosage: 100 MG, DAILY
     Route: 048
     Dates: start: 20210129, end: 20210131
  2. BINIMETINIB [Suspect]
     Active Substance: BINIMETINIB
     Dosage: 30 MG, 2X/DAY (BID)
     Route: 048
     Dates: start: 20210131, end: 20210131

REACTIONS (1)
  - Neoplasm progression [Fatal]

NARRATIVE: CASE EVENT DATE: 20210215
